FAERS Safety Report 10688731 (Version 1)
Quarter: 2015Q1

REPORT INFORMATION
  Report Type: Spontaneous
  Country: FR (occurrence: FR)
  Receive Date: 20150102
  Receipt Date: 20150102
  Transmission Date: 20150720
  Serious: Yes (Other)
  Sender: FDA-Public Use
  Company Number: PHHY2014FR170236

PATIENT
  Age: 55 Year
  Sex: Female

DRUGS (3)
  1. RIFADINE [Suspect]
     Active Substance: RIFAMPIN
     Indication: ATYPICAL MYCOBACTERIAL PNEUMONIA
     Dosage: 500 MG, QD
     Route: 048
     Dates: start: 20140106
  2. LAMPRENE [Suspect]
     Active Substance: CLOFAZIMINE
     Indication: ATYPICAL MYCOBACTERIAL PNEUMONIA
     Dosage: 100 MG, QD
     Route: 048
     Dates: start: 20140728
  3. ZECLAR [Suspect]
     Active Substance: CLARITHROMYCIN
     Indication: ATYPICAL MYCOBACTERIAL PNEUMONIA
     Dosage: 500 MG, QD
     Route: 048
     Dates: start: 20140106

REACTIONS (2)
  - Acute kidney injury [Not Recovered/Not Resolved]
  - Spontaneous haematoma [Not Recovered/Not Resolved]

NARRATIVE: CASE EVENT DATE: 20141124
